FAERS Safety Report 12317780 (Version 1)
Quarter: 2016Q2

REPORT INFORMATION
  Report Type: Spontaneous
  Country: US (occurrence: US)
  Receive Date: 20160429
  Receipt Date: 20160429
  Transmission Date: 20160815
  Serious: No
  Sender: FDA-Public Use
  Company Number: US-BAUSCH-BL-2015-010691

PATIENT
  Sex: Female

DRUGS (5)
  1. ALREX [Suspect]
     Active Substance: LOTEPREDNOL ETABONATE
     Indication: OCULAR HYPERAEMIA
  2. PRESERVATIVE FREE ARTIFICIAL TEARS [Concomitant]
     Indication: EYE PAIN
     Route: 047
  3. ALREX [Suspect]
     Active Substance: LOTEPREDNOL ETABONATE
     Indication: EYE PAIN
     Route: 047
  4. FLOURESCEIN [Concomitant]
     Indication: OPHTHALMOLOGICAL EXAMINATION
     Route: 047
  5. PRESERVATIVE FREE ARTIFICIAL TEARS [Concomitant]
     Indication: OCULAR HYPERAEMIA

REACTIONS (3)
  - Eye pain [Unknown]
  - Ocular hyperaemia [Unknown]
  - Therapeutic product ineffective [Unknown]
